FAERS Safety Report 5107062-7 (Version None)
Quarter: 2006Q3

REPORT INFORMATION
  Report Type: 
  Country: None (occurrence: None)
  Receive Date: 20060913
  Receipt Date: 20060904
  Transmission Date: 20061208
  Serious: Yes (Disabling)
  Sender: FDA-Public Use
  Company Number: OSCN-NO-0609S-0264

PATIENT
  Age: 72 Year
  Sex: Male
  Weight: 82 kg

DRUGS (5)
  1. OMNISCAN [Suspect]
     Indication: TRANSPLANT FAILURE
     Dosage: SINGLE DOSE
     Dates: start: 20060724, end: 20060724
  2. TARCROLIMUS (TACRROLIMUS) [Concomitant]
  3. UNSPECIFIED CORTICOSTEROIDS [Concomitant]
  4. MYCOPHENOLATE MOFETIL [Concomitant]
  5. TRIMETHOPRIM SULFAMETHOXAZOLE (EUSAPRIM) [Concomitant]

REACTIONS (1)
  - NEPHROGENIC FIBROSING DERMOPATHY [None]
